FAERS Safety Report 21004270 (Version 3)
Quarter: 2024Q1

REPORT INFORMATION
  Report Type: Report from Study
  Country: CA (occurrence: CA)
  Receive Date: 20220624
  Receipt Date: 20240125
  Transmission Date: 20240410
  Serious: Yes (Hospitalization)
  Sender: FDA-Public Use
  Company Number: CA-GLAXOSMITHKLINE-CA2022091066

PATIENT

DRUGS (3)
  1. MEPOLIZUMAB [Suspect]
     Active Substance: MEPOLIZUMAB
     Indication: Asthma
     Dosage: 100 MG, Q4W
     Route: 058
     Dates: start: 20191001
  2. PREDNISONE [Concomitant]
     Active Substance: PREDNISONE
     Indication: Product used for unknown indication
     Dosage: UNK
     Dates: start: 20231230
  3. AZITHROMYCIN [Concomitant]
     Active Substance: AZITHROMYCIN
     Indication: Product used for unknown indication
     Dosage: 250 MG
     Dates: start: 20231230

REACTIONS (10)
  - Chronic obstructive pulmonary disease [Unknown]
  - Haemorrhoidal haemorrhage [Unknown]
  - Malaise [Unknown]
  - Vomiting [Unknown]
  - Colonoscopy [Unknown]
  - Initial insomnia [Unknown]
  - Dyspnoea [Unknown]
  - Weight decreased [Unknown]
  - Asthma [Unknown]
  - Wheezing [Unknown]

NARRATIVE: CASE EVENT DATE: 20220609
